FAERS Safety Report 7064619-4 (Version None)
Quarter: 2010Q4

REPORT INFORMATION
  Report Type: 
  Country: None (occurrence: None)
  Receive Date: 20101022
  Receipt Date: 20101022
  Transmission Date: 20110411
  Serious: Yes (Other)
  Sender: FDA-Public Use
  Company Number: None

PATIENT
  Age: 83 Year
  Sex: Male
  Weight: 73.4827 kg

DRUGS (8)
  1. SENSIPAR [Suspect]
     Indication: HYPERPARATHYROIDISM
     Dosage: 30 MG ONCE DAILY MOUTH
     Route: 048
     Dates: start: 20100917
  2. SENSIPAR [Suspect]
     Indication: RENAL FAILURE CHRONIC
     Dosage: 30 MG ONCE DAILY MOUTH
     Route: 048
     Dates: start: 20100917
  3. SENSIPAR [Suspect]
     Indication: HYPERPARATHYROIDISM
     Dosage: 30 MG ONCE DAILY MOUTH
     Route: 048
     Dates: start: 20100921
  4. SENSIPAR [Suspect]
     Indication: RENAL FAILURE CHRONIC
     Dosage: 30 MG ONCE DAILY MOUTH
     Route: 048
     Dates: start: 20100921
  5. RENA-VITE [Concomitant]
  6. ASPIRIN [Concomitant]
  7. VEVOTHYROXINE [Concomitant]
  8. LOW SODIUM DIET [Concomitant]

REACTIONS (3)
  - DIZZINESS [None]
  - MIDDLE INSOMNIA [None]
  - PRURITUS [None]
